FAERS Safety Report 4662723-9 (Version None)
Quarter: 2005Q2

REPORT INFORMATION
  Report Type: 
  Country: None (occurrence: None)
  Receive Date: 20050516
  Receipt Date: 20050503
  Transmission Date: 20051028
  Serious: Yes (Other)
  Sender: FDA-Public Use
  Company Number: CA-GLAXOSMITHKLINE-B0379713A

PATIENT
  Age: 25 Year
  Sex: Female

DRUGS (2)
  1. MALARONE [Suspect]
     Indication: PLASMODIUM FALCIPARUM INFECTION
     Route: 048
  2. PYRIMETHAMINE [Concomitant]
     Indication: MALARIA PROPHYLAXIS
     Route: 065

REACTIONS (9)
  - CHILLS [None]
  - DRUG INEFFECTIVE [None]
  - DRUG RESISTANCE [None]
  - HEADACHE [None]
  - HYPERHIDROSIS [None]
  - MALARIA [None]
  - PLASMODIUM FALCIPARUM INFECTION [None]
  - PYREXIA [None]
  - THROMBOCYTOPENIA [None]
